FAERS Safety Report 22110678 (Version 1)
Quarter: 2023Q1

REPORT INFORMATION
  Report Type: Spontaneous
  Country: US (occurrence: None)
  Receive Date: 20230317
  Receipt Date: 20230317
  Transmission Date: 20230418
  Serious: No
  Sender: FDA-Public Use
  Company Number: None

PATIENT
  Age: 43 Year
  Sex: Female
  Weight: 65.25 kg

DRUGS (1)
  1. KYBELLA [Suspect]
     Active Substance: DEOXYCHOLIC ACID
     Indication: Body fat disorder
     Dates: start: 20210412, end: 20210413

REACTIONS (4)
  - Injection site swelling [None]
  - Injection site erythema [None]
  - Injection site hypoaesthesia [None]
  - Pruritus [None]

NARRATIVE: CASE EVENT DATE: 20210412
